FAERS Safety Report 12979483 (Version 1)
Quarter: 2016Q4

REPORT INFORMATION
  Report Type: Spontaneous
  Country: NL (occurrence: NL)
  Receive Date: 20161128
  Receipt Date: 20161128
  Transmission Date: 20170207
  Serious: Yes (Other)
  Sender: FDA-Public Use
  Company Number: NL-PFIZER INC-2016546254

PATIENT
  Age: 79 Year
  Sex: Male
  Weight: 75 kg

DRUGS (4)
  1. TRIAMTEREEN/EPITIZIDE [Interacting]
     Active Substance: EPITHIAZIDE\TRIAMTERENE
     Indication: HYPERTENSION
     Dosage: 1 DF, 1X/DAY
     Route: 048
     Dates: start: 20000101
  2. AMLODIPINE BESILATE [Suspect]
     Active Substance: AMLODIPINE BESYLATE
     Dosage: 5 MG, 1X/DAY
     Route: 048
     Dates: start: 20161011
  3. OFLOXACINE [Interacting]
     Active Substance: OFLOXACIN
     Indication: PROSTATITIS
     Dosage: 400 MG, 1X/DAY
     Route: 048
     Dates: start: 20161019
  4. DUTASTERIDE/TAMSULOSINEHYDROCHLORIDE FISHER [Interacting]
     Active Substance: DUTASTERIDE\TAMSULOSIN HYDROCHLORIDE
     Indication: BENIGN PROSTATIC HYPERPLASIA
     Dosage: 1 DF, 1X/DAY
     Route: 048
     Dates: start: 20161019, end: 20161106

REACTIONS (3)
  - Drug interaction [Unknown]
  - Arrhythmia [Recovered/Resolved]
  - Dizziness [Recovered/Resolved]

NARRATIVE: CASE EVENT DATE: 20161025
